FAERS Safety Report 5892369-6 (Version None)
Quarter: 2008Q3

REPORT INFORMATION
  Report Type: 
  Country: None (occurrence: None)
  Receive Date: 20080918
  Receipt Date: 20080918
  Transmission Date: 20090109
  Serious: Yes (Other)
  Sender: FDA-Public Use
  Company Number: None

PATIENT
  Age: 56 Year
  Sex: Female
  Weight: 72.5755 kg

DRUGS (2)
  1. FOSAMAX [Suspect]
     Indication: FRACTURE
     Dosage: 1 TAB WEEKLY PO
     Route: 048
     Dates: start: 20070701, end: 20070901
  2. FOSAMAX [Suspect]
     Indication: OSTEOPENIA
     Dosage: 1 TAB WEEKLY PO
     Route: 048
     Dates: start: 20070701, end: 20070901

REACTIONS (3)
  - ARTHRITIS [None]
  - HYPOKINESIA [None]
  - JOINT SWELLING [None]
